FAERS Safety Report 23185853 (Version 1)
Quarter: 2023Q4

REPORT INFORMATION
  Report Type: Spontaneous
  Country: US (occurrence: US)
  Receive Date: 20231115
  Receipt Date: 20231115
  Transmission Date: 20240110
  Serious: Yes (Other)
  Sender: FDA-Public Use
  Company Number: US-OTSUKA-2023_009333

PATIENT
  Sex: Male
  Weight: 73.03 kg

DRUGS (1)
  1. NUEDEXTA [Suspect]
     Active Substance: DEXTROMETHORPHAN HYDROBROMIDE\QUINIDINE SULFATE
     Indication: Affect lability
     Dosage: 1 DF (20-10MG), BID
     Route: 065
     Dates: start: 20230322, end: 20230410

REACTIONS (3)
  - Thrombocytopenia [Unknown]
  - Haemoglobin decreased [Unknown]
  - Somnolence [Unknown]
